FAERS Safety Report 6321586-6 (Version None)
Quarter: 2009Q3

REPORT INFORMATION
  Report Type: 
  Country: None (occurrence: None)
  Receive Date: 20090824
  Receipt Date: 20090813
  Transmission Date: 20100115
  Serious: Yes (Other)
  Sender: FDA-Public Use
  Company Number: US-JNJFOC-20090505938

PATIENT
  Sex: Female
  Weight: 63.5 kg

DRUGS (4)
  1. REMICADE [Suspect]
     Route: 042
  2. REMICADE [Suspect]
     Route: 042
  3. REMICADE [Suspect]
     Indication: COLITIS ULCERATIVE
     Route: 042
  4. MERCAPTOPURINE [Suspect]
     Indication: COLITIS ULCERATIVE

REACTIONS (1)
  - DENTAL CARIES [None]
